FAERS Safety Report 15189333 (Version 2)
Quarter: 2018Q3

REPORT INFORMATION
  Report Type: Spontaneous
  Country: JP (occurrence: JP)
  Receive Date: 20180724
  Receipt Date: 20180817
  Transmission Date: 20181010
  Serious: Yes (Hospitalization, Other)
  Sender: FDA-Public Use
  Company Number: JP-ELI_LILLY_AND_COMPANY-JP201807007552

PATIENT
  Age: 68 Year
  Sex: Female
  Weight: 39 kg

DRUGS (5)
  1. DOCETAXEL. [Suspect]
     Active Substance: DOCETAXEL
     Indication: LUNG ADENOCARCINOMA STAGE IV
     Dosage: 60 MG/M2, OTHER
     Route: 041
     Dates: start: 20161104, end: 20170814
  2. DEXART [Concomitant]
     Active Substance: DEXAMETHASONE SODIUM PHOSPHATE
     Dosage: 6.6 MG, DAILY
  3. NEUTROGIN [Concomitant]
     Active Substance: LENOGRASTIM
     Indication: PROPHYLAXIS
     Dosage: 100 IU, DAILY
     Route: 058
     Dates: start: 20161104, end: 20170814
  4. CYRAMZA [Suspect]
     Active Substance: RAMUCIRUMAB
     Indication: LUNG ADENOCARCINOMA STAGE IV
     Dosage: 10 MG/KG, OTHER
     Route: 041
     Dates: start: 20161104, end: 20170814
  5. POLARAMINE [Concomitant]
     Active Substance: DEXCHLORPHENIRAMINE MALEATE
     Dosage: 5 MG, DAILY

REACTIONS (4)
  - Interstitial lung disease [Recovering/Resolving]
  - Febrile neutropenia [Recovered/Resolved]
  - Malignant neoplasm progression [Unknown]
  - Infusion related reaction [Recovered/Resolved]

NARRATIVE: CASE EVENT DATE: 20161104
